FAERS Safety Report 11855039 (Version 1)
Quarter: 2015Q4

REPORT INFORMATION
  Report Type: Spontaneous
  Country: FR (occurrence: FR)
  Receive Date: 20151221
  Receipt Date: 20151221
  Transmission Date: 20160305
  Serious: Yes (Death, Hospitalization)
  Sender: FDA-Public Use
  Company Number: FR-ELI_LILLY_AND_COMPANY-FR201512005013

PATIENT
  Age: 53 Year
  Sex: Male

DRUGS (2)
  1. ALIMTA [Suspect]
     Active Substance: PEMETREXED DISODIUM
     Indication: LUNG ADENOCARCINOMA
     Dosage: 825 MG, CYCLICAL
     Route: 042
     Dates: start: 20120131, end: 20120221
  2. CISPLATINE [Suspect]
     Active Substance: CISPLATIN
     Indication: LUNG ADENOCARCINOMA
     Dosage: 125 MG, CYCLICAL
     Route: 042
     Dates: start: 20120131, end: 20120221

REACTIONS (5)
  - Asthenia [Unknown]
  - Respiratory distress [Fatal]
  - Somnolence [Unknown]
  - Pancytopenia [Fatal]
  - Pneumonia pneumococcal [Not Recovered/Not Resolved]

NARRATIVE: CASE EVENT DATE: 20120224
